FAERS Safety Report 14959815 (Version 1)
Quarter: 2018Q2

REPORT INFORMATION
  Report Type: Spontaneous
  Country: US (occurrence: US)
  Receive Date: 20180531
  Receipt Date: 20180531
  Transmission Date: 20180711
  Serious: No
  Sender: FDA-Public Use
  Company Number: US-BIOGEN-2018BI00585982

PATIENT
  Sex: Female

DRUGS (1)
  1. AVONEX [Suspect]
     Active Substance: INTERFERON BETA-1A
     Indication: MULTIPLE SCLEROSIS
     Route: 065

REACTIONS (10)
  - Hypersomnia [Recovered/Resolved]
  - Fall [Recovered/Resolved]
  - Haemorrhage [Unknown]
  - Aphasia [Unknown]
  - Stress [Unknown]
  - Balance disorder [Unknown]
  - Pruritus [Unknown]
  - Ligament sprain [Unknown]
  - Drug ineffective [Unknown]
  - Fatigue [Not Recovered/Not Resolved]
